FAERS Safety Report 23508819 (Version 2)
Quarter: 2024Q1

REPORT INFORMATION
  Report Type: Spontaneous
  Country: CN (occurrence: CN)
  Receive Date: 20240209
  Receipt Date: 20240228
  Transmission Date: 20240410
  Serious: Yes (Other)
  Sender: FDA-Public Use
  Company Number: CN-002147023-NVSC2024CN028517

PATIENT
  Age: 68 Year
  Sex: Female

DRUGS (3)
  1. SACUBITRIL\VALSARTAN [Suspect]
     Active Substance: SACUBITRIL\VALSARTAN
     Indication: Angina unstable
     Dosage: 100 MG, QD
     Route: 048
     Dates: start: 20240121, end: 20240124
  2. FUROSEMIDE [Suspect]
     Active Substance: FUROSEMIDE
     Indication: Angina unstable
     Dosage: 20 MG, QD
     Route: 042
     Dates: start: 20240123, end: 20240124
  3. NITROGLYCERIN [Suspect]
     Active Substance: NITROGLYCERIN
     Indication: Angina unstable
     Dosage: 5 MG, QD (PUMP INJECTION)
     Route: 065
     Dates: start: 20240119, end: 20240124

REACTIONS (3)
  - Hypotension [Recovering/Resolving]
  - Headache [Recovering/Resolving]
  - Dizziness [Recovering/Resolving]

NARRATIVE: CASE EVENT DATE: 20240124
